FAERS Safety Report 6274570-5 (Version None)
Quarter: 2009Q3

REPORT INFORMATION
  Report Type: 
  Country: None (occurrence: None)
  Receive Date: 20090720
  Receipt Date: 20090710
  Transmission Date: 20100115
  Serious: Yes (Hospitalization)
  Sender: FDA-Public Use
  Company Number: JP-AVENTIS-200911956JP

PATIENT
  Age: 36 Year
  Sex: Female

DRUGS (2)
  1. LANTUS [Suspect]
     Indication: GESTATIONAL DIABETES
     Route: 058
  2. MAGNESIUM SULFATE [Concomitant]
     Route: 041

REACTIONS (3)
  - DIABETES INSIPIDUS [None]
  - DRUG EXPOSURE DURING PREGNANCY [None]
  - RENAL FAILURE ACUTE [None]
